FAERS Safety Report 17828086 (Version 1)
Quarter: 2020Q2

REPORT INFORMATION
  Report Type: Spontaneous
  Country: JP (occurrence: JP)
  Receive Date: 20200527
  Receipt Date: 20200527
  Transmission Date: 20200714
  Serious: Yes (Other)
  Sender: FDA-Public Use
  Company Number: JP-MYLANLABS-2020M1050733

PATIENT
  Sex: Female

DRUGS (4)
  1. PREDNISOLONE TABLETS 5MG ^PFIZER^ [Suspect]
     Active Substance: PREDNISOLONE
     Dosage: 5 MILLIGRAM, QD
     Route: 048
     Dates: start: 2019, end: 201912
  2. PREDNISOLONE TABLETS 5MG ^PFIZER^ [Suspect]
     Active Substance: PREDNISOLONE
     Dosage: 1.25 MILLIGRAM, QD
     Route: 048
     Dates: start: 202004
  3. PREDNISOLONE TABLETS 5MG ^PFIZER^ [Suspect]
     Active Substance: PREDNISOLONE
     Dosage: 2.5 MILLIGRAM, QD
     Route: 048
     Dates: start: 202001
  4. PREDNISOLONE TABLETS 5MG ^PFIZER^ [Suspect]
     Active Substance: PREDNISOLONE
     Indication: URTICARIA CHRONIC
     Dosage: 5 MILLIGRAM, BID
     Route: 048
     Dates: start: 201909, end: 2019

REACTIONS (3)
  - Off label use [Unknown]
  - Drug ineffective [Unknown]
  - Surgery [Unknown]

NARRATIVE: CASE EVENT DATE: 201909
